FAERS Safety Report 9772203 (Version 1)
Quarter: 2013Q4

REPORT INFORMATION
  Report Type: Report from Study
  Country: MX (occurrence: MX)
  Receive Date: 20131219
  Receipt Date: 20131219
  Transmission Date: 20140711
  Serious: Yes (Other)
  Sender: FDA-Public Use
  Company Number: PHHY2013MX145821

PATIENT
  Age: 68 Year
  Sex: Female
  Weight: 68 kg

DRUGS (5)
  1. ONBREZ [Suspect]
     Indication: CHRONIC OBSTRUCTIVE PULMONARY DISEASE
     Dosage: 1 DF, QD IN MORNING
  2. DIOVAN [Concomitant]
     Indication: HYPERTENSION
     Dosage: 0.5 DF, IN MORNING
     Route: 048
  3. SPIRIVA [Concomitant]
     Indication: CHRONIC OBSTRUCTIVE PULMONARY DISEASE
     Dosage: ONE INHALATION IN THE NIGHT
     Route: 055
  4. ALDACTONE [Concomitant]
     Indication: BLOOD POTASSIUM INCREASED
     Dosage: 1 DF, QD IN THE MORNING
     Route: 048
  5. OXYGEN [Concomitant]
     Indication: CHRONIC OBSTRUCTIVE PULMONARY DISEASE
     Dosage: 3 L, PER DAY
     Route: 045

REACTIONS (2)
  - Arrhythmia [Recovered/Resolved]
  - Hypertension [Recovered/Resolved]
